FAERS Safety Report 10299603 (Version 3)
Quarter: 2015Q3

REPORT INFORMATION
  Report Type: Spontaneous
  Country: US (occurrence: US)
  Receive Date: 20140711
  Receipt Date: 20150814
  Transmission Date: 20151125
  Serious: No
  Sender: FDA-Public Use
  Company Number: US-GILEAD-2013-0078614

PATIENT
  Age: 69 Year
  Sex: Female
  Weight: 115 kg

DRUGS (4)
  1. LETAIRIS [Suspect]
     Active Substance: AMBRISENTAN
     Indication: CONNECTIVE TISSUE DISORDER
  2. LETAIRIS [Suspect]
     Active Substance: AMBRISENTAN
     Indication: PULMONARY HYPERTENSION
     Dosage: 10 MG, QD
     Dates: start: 20090825, end: 20130627
  3. LETAIRIS [Suspect]
     Active Substance: AMBRISENTAN
     Indication: CREST SYNDROME
  4. EPOPROSTENOL SODIUM. [Concomitant]
     Active Substance: EPOPROSTENOL SODIUM

REACTIONS (1)
  - Fluid retention [Recovering/Resolving]

NARRATIVE: CASE EVENT DATE: 20090909
